FAERS Safety Report 5601430-2 (Version None)
Quarter: 2007Q4

REPORT INFORMATION
  Report Type: 
  Country: None (occurrence: None)
  Receive Date: 20071231
  Receipt Date: 20070228
  Transmission Date: 20080405
  Serious: Yes (Hospitalization)
  Sender: FDA-Public Use
  Company Number: 152490USA

PATIENT
  Age: 72 Year
  Sex: Female
  Weight: 86.1834 kg

DRUGS (11)
  1. CLOZAPINE [Suspect]
     Indication: PSYCHOTIC DISORDER
     Dosage: 200 MG (200 MG,1 IN 1 D),ORAL
     Route: 048
     Dates: end: 20070201
  2. SINEMET [Concomitant]
  3. PRAMIPEXOLE DIHYDROCHLORIDE [Concomitant]
  4. ATORVASTATIN CALCIUM [Concomitant]
  5. GEMFIBROZIL [Concomitant]
  6. CENTRUM SILVER [Concomitant]
  7. POLYCARBOPHIL CALCIUM [Concomitant]
  8. SENNA ALEXANDRINA [Concomitant]
  9. DOCUSATE SODIUM [Concomitant]
  10. RANITIDINE HYDROCHLORIDE [Concomitant]
  11. ACETYLSALICYLIC ACID SRT [Concomitant]

REACTIONS (5)
  - BRONCHITIS [None]
  - HAEMOGLOBIN DECREASED [None]
  - NEUTROPHIL COUNT DECREASED [None]
  - PLATELET COUNT DECREASED [None]
  - WHITE BLOOD CELL COUNT DECREASED [None]
